FAERS Safety Report 17061939 (Version 1)
Quarter: 2019Q4

REPORT INFORMATION
  Report Type: Spontaneous
  Country: US (occurrence: US)
  Receive Date: 20191121
  Receipt Date: 20191121
  Transmission Date: 20200122
  Serious: No
  Sender: FDA-Public Use
  Company Number: US-INTERCEPT-PMOCA2017000401

PATIENT
  Age: 69 Year
  Sex: Female

DRUGS (4)
  1. OCALIVA [Suspect]
     Active Substance: OBETICHOLIC ACID
     Indication: PRIMARY BILIARY CHOLANGITIS
     Dosage: 5 MG, UNK
     Route: 065
     Dates: start: 20160815, end: 20161205
  2. OCALIVA [Suspect]
     Active Substance: OBETICHOLIC ACID
     Dosage: 10 MG, QD
     Route: 048
     Dates: start: 20161206
  3. URSODIOL. [Concomitant]
     Active Substance: URSODIOL
     Dosage: 500 MG, BID
  4. OCALIVA [Suspect]
     Active Substance: OBETICHOLIC ACID
     Dosage: 10 MG, QD
     Dates: start: 20161111

REACTIONS (14)
  - Aphonia [Unknown]
  - Nasopharyngitis [Unknown]
  - Fatigue [Unknown]
  - Somnolence [Unknown]
  - Nausea [Unknown]
  - Dysphonia [Unknown]
  - Vomiting [Unknown]
  - Asthenia [Unknown]
  - Abdominal discomfort [Unknown]
  - Formication [Unknown]
  - Hot flush [Unknown]
  - Rash [Unknown]
  - Skin exfoliation [Unknown]
  - Rash pruritic [Unknown]

NARRATIVE: CASE EVENT DATE: 20190524
